FAERS Safety Report 4824068-3 (Version None)
Quarter: 2005Q4

REPORT INFORMATION
  Report Type: 
  Country: None (occurrence: None)
  Receive Date: 20051108
  Receipt Date: 20051028
  Transmission Date: 20060501
  Serious: No
  Sender: FDA-Public Use
  Company Number: USA0510112183

PATIENT
  Age: 70 Year
  Sex: Female

DRUGS (2)
  1. CYMBALTA [Suspect]
     Indication: DEPRESSION
     Dosage: 60 MG DAY
  2. TOPAMAX [Concomitant]

REACTIONS (2)
  - HEPATIC FUNCTION ABNORMAL [None]
  - RENAL IMPAIRMENT [None]
